FAERS Safety Report 4462807-4 (Version None)
Quarter: 2004Q3

REPORT INFORMATION
  Report Type: 
  Country: None (occurrence: None)
  Receive Date: 20040927
  Receipt Date: 20040914
  Transmission Date: 20050211
  Serious: Yes (Other)
  Sender: FDA-Public Use
  Company Number: 2004066805

PATIENT
  Age: 32 Year
  Sex: Female
  Weight: 70.3075 kg

DRUGS (4)
  1. NEURONTIN [Suspect]
     Indication: PAIN
     Dosage: 300 MG (100 MG, 3 IN 1 D), ORAL
     Route: 048
     Dates: start: 20040908, end: 20040912
  2. PROMETHAZINE HYDROCHLORIDE TAB [Suspect]
     Indication: ILL-DEFINED DISORDER
     Dosage: ORAL
     Route: 048
     Dates: start: 20040913
  3. VICODIN [Concomitant]
  4. CYCLOBENAZAPRINE HYDROCHLORIDE (CYCLOBENAZAPRINE HYDROCHLORIDE) [Concomitant]

REACTIONS (6)
  - DRUG INEFFECTIVE [None]
  - EPISTAXIS [None]
  - FEELING ABNORMAL [None]
  - HYPERSENSITIVITY [None]
  - VISION BLURRED [None]
  - WHITE BLOOD CELL COUNT INCREASED [None]
